FAERS Safety Report 17971761 (Version 5)
Quarter: 2020Q4

REPORT INFORMATION
  Report Type: Spontaneous
  Country: US (occurrence: US)
  Receive Date: 20200702
  Receipt Date: 20201007
  Transmission Date: 20210113
  Serious: No
  Sender: FDA-Public Use
  Company Number: US-GLAXOSMITHKLINE-US2020AMR116398

PATIENT
  Sex: Female

DRUGS (3)
  1. ZEJULA [Suspect]
     Active Substance: NIRAPARIB
     Dosage: 200 MG, QD
     Route: 048
  2. ZEJULA [Suspect]
     Active Substance: NIRAPARIB
     Dosage: 200 MG, QD
  3. ZEJULA [Suspect]
     Active Substance: NIRAPARIB
     Indication: FALLOPIAN TUBE CANCER
     Dosage: 300 MG, QD
     Dates: start: 20200617

REACTIONS (16)
  - Blood pressure increased [Unknown]
  - Anaemia [Unknown]
  - Pain in extremity [Unknown]
  - Muscle spasms [Unknown]
  - Heart rate increased [Unknown]
  - Tumour marker increased [Not Recovered/Not Resolved]
  - Agitation [Unknown]
  - Nausea [Unknown]
  - Red blood cell count decreased [Not Recovered/Not Resolved]
  - Platelet count decreased [Unknown]
  - Constipation [Unknown]
  - Rash [Unknown]
  - Hot flush [Unknown]
  - Amnesia [Unknown]
  - White blood cell count decreased [Recovered/Resolved]
  - Peripheral swelling [Unknown]
